FAERS Safety Report 18687867 (Version 1)
Quarter: 2020Q4

REPORT INFORMATION
  Report Type: Spontaneous
  Country: ZA (occurrence: ZA)
  Receive Date: 20201231
  Receipt Date: 20201231
  Transmission Date: 20210114
  Serious: Yes (Hospitalization, Other)
  Sender: FDA-Public Use
  Company Number: NVSC2020ZA308808

PATIENT
  Age: 6 Year
  Sex: Male
  Weight: 20 kg

DRUGS (1)
  1. EXJADE [Suspect]
     Active Substance: DEFERASIROX
     Indication: THALASSAEMIA BETA
     Dosage: UNK
     Route: 048
     Dates: start: 201611

REACTIONS (5)
  - Appendicitis [Unknown]
  - Ascites [Unknown]
  - Cholelithiasis [Unknown]
  - Abdominal pain [Unknown]
  - Pancreatitis [Recovered/Resolved with Sequelae]

NARRATIVE: CASE EVENT DATE: 20201113
